FAERS Safety Report 5143624-9 (Version None)
Quarter: 2006Q4

REPORT INFORMATION
  Report Type: 
  Country: None (occurrence: None)
  Receive Date: 20061103
  Receipt Date: 20061030
  Transmission Date: 20070319
  Serious: Yes (Other)
  Sender: FDA-Public Use
  Company Number: JP-BRISTOL-MYERS SQUIBB COMPANY-13560800

PATIENT
  Age: 33 Year
  Sex: Female

DRUGS (5)
  1. SINEMET [Suspect]
     Indication: PARKINSON'S DISEASE
     Dosage: INCREASED TO 1000MG IN 2004 AND CONTINUING
     Route: 048
     Dates: start: 20010101
  2. CABERGOLINE [Suspect]
     Indication: PARKINSON'S DISEASE
     Dates: start: 20010101, end: 20040101
  3. LEVODOPA [Concomitant]
     Dates: start: 20050101
  4. SELEGILINE HCL [Concomitant]
  5. TRIHEXYPHENIDYL HCL [Concomitant]

REACTIONS (7)
  - ABORTION INDUCED [None]
  - CAESAREAN SECTION [None]
  - DEPRESSED MOOD [None]
  - NORMAL NEWBORN [None]
  - PARKINSON'S DISEASE [None]
  - PREGNANCY [None]
  - SUPPRESSED LACTATION [None]
